FAERS Safety Report 25548852 (Version 3)
Quarter: 2025Q3

REPORT INFORMATION
  Report Type: Spontaneous
  Country: IR (occurrence: IR)
  Receive Date: 20250714
  Receipt Date: 20250829
  Transmission Date: 20251020
  Serious: Yes (Other)
  Sender: ROCHE
  Company Number: IR-ROCHE-10000332580

PATIENT
  Sex: Male

DRUGS (6)
  1. AVASTIN [Suspect]
     Active Substance: BEVACIZUMAB
     Indication: Glioblastoma multiforme
     Route: 065
  2. AVASTIN [Suspect]
     Active Substance: BEVACIZUMAB
     Route: 065
  3. AVASTIN [Suspect]
     Active Substance: BEVACIZUMAB
     Route: 065
  4. TREHALOSE DIHYDRATE [Concomitant]
     Active Substance: TREHALOSE DIHYDRATE
  5. SODIUM PHOSPHATE [Concomitant]
     Active Substance: SODIUM PHOSPHATE
  6. POLYSORBATE [Concomitant]
     Active Substance: POLYSORBATE

REACTIONS (3)
  - Neoplasm progression [Unknown]
  - Disease progression [Unknown]
  - Drug ineffective [Unknown]
